FAERS Safety Report 6673813-3 (Version None)
Quarter: 2010Q2

REPORT INFORMATION
  Report Type: 
  Country: None (occurrence: None)
  Receive Date: 20100407
  Receipt Date: 20100329
  Transmission Date: 20101027
  Serious: Yes (Other)
  Sender: FDA-Public Use
  Company Number: 2010US001059

PATIENT
  Age: 76 Year
  Sex: Female

DRUGS (7)
  1. VESICARE [Suspect]
     Indication: INCONTINENCE
     Dosage: 10 MG, UID/QD, ORAL
     Route: 048
     Dates: start: 20080101
  2. NEXIUM IV [Concomitant]
  3. LOPRESSOR [Concomitant]
  4. CITRACAL (CALCIUM CITRATE) [Concomitant]
  5. VITAMIN D NOS (VITAMIN D NOS) [Concomitant]
  6. ACTOSE (PIOGLITAZONE HYDROCHLORIDE) [Concomitant]
  7. QUINAPRIL (QUNIAPRIL) [Concomitant]

REACTIONS (4)
  - CONDITION AGGRAVATED [None]
  - DRUG EFFECT DECREASED [None]
  - GASTROINTESTINAL ULCER HAEMORRHAGE [None]
  - URINARY INCONTINENCE [None]
